FAERS Safety Report 6181243-6 (Version None)
Quarter: 2009Q2

REPORT INFORMATION
  Report Type: 
  Country: None (occurrence: None)
  Receive Date: 20090506
  Receipt Date: 20090430
  Transmission Date: 20091009
  Serious: Yes (Life-Threatening, Other)
  Sender: FDA-Public Use
  Company Number: DE-BRISTOL-MYERS SQUIBB COMPANY-14610232

PATIENT
  Age: 70 Year
  Sex: Female

DRUGS (5)
  1. METFORMIN HCL [Suspect]
     Dosage: METFORMIN HCL 850MG TABS
  2. XELEVIA [Suspect]
  3. BISOPROLOL FUMARATE [Concomitant]
  4. BROMAZEPAM [Concomitant]
  5. CITALOPRAM HYDROBROMIDE [Concomitant]
     Dosage: 1 DOSAGE FORM= 1 DOSAGE FORM

REACTIONS (3)
  - DEHYDRATION [None]
  - LACTIC ACIDOSIS [None]
  - RENAL FAILURE ACUTE [None]
